FAERS Safety Report 13745697 (Version 3)
Quarter: 2017Q3

REPORT INFORMATION
  Report Type: Spontaneous
  Country: JP (occurrence: JP)
  Receive Date: 20170712
  Receipt Date: 20170807
  Transmission Date: 20171127
  Serious: Yes (Other)
  Sender: FDA-Public Use
  Company Number: JP-ASTELLAS-2017JP009731

PATIENT
  Age: 83 Year
  Sex: Male
  Weight: 55 kg

DRUGS (14)
  1. ZOLEDRONIC ACID [Concomitant]
     Active Substance: ZOLEDRONIC ACID
     Indication: METASTASES TO BONE
     Route: 041
     Dates: start: 20160328
  2. MUCODYNE [Concomitant]
     Active Substance: CARBOCYSTEINE
     Indication: UPPER RESPIRATORY TRACT INFECTION
     Route: 048
     Dates: start: 20161124, end: 20161127
  3. NORVASC [Concomitant]
     Active Substance: AMLODIPINE BESYLATE
     Indication: HYPERTENSION
     Route: 048
     Dates: start: 20161014, end: 20161027
  4. HYDROCHLOROTHIAZIDE. [Concomitant]
     Active Substance: HYDROCHLOROTHIAZIDE
     Indication: HYPERTENSION
     Route: 048
     Dates: start: 20161110, end: 20170413
  5. LEUPLIN [Concomitant]
     Active Substance: LEUPROLIDE ACETATE
     Indication: PROSTATE CANCER
     Route: 058
     Dates: start: 20150618
  6. PL [Concomitant]
     Active Substance: ACETAMINOPHEN\CAFFEINE\PROMETHAZINE\SALICYLAMIDE
     Indication: UPPER RESPIRATORY TRACT INFECTION
     Route: 048
     Dates: start: 20161124, end: 20161127
  7. FLAVERIC [Concomitant]
     Active Substance: BENPROPERINE PHOSPHATE
     Indication: UPPER RESPIRATORY TRACT INFECTION
     Route: 048
     Dates: start: 20161124, end: 20161127
  8. XTANDI [Suspect]
     Active Substance: ENZALUTAMIDE
     Indication: HORMONE-REFRACTORY PROSTATE CANCER
     Route: 048
     Dates: start: 20160929, end: 20170413
  9. MUCOSTA [Concomitant]
     Active Substance: REBAMIPIDE
     Indication: CHEILITIS
     Route: 048
     Dates: start: 20170316, end: 20170322
  10. NORVASC [Concomitant]
     Active Substance: AMLODIPINE BESYLATE
     Route: 048
     Dates: start: 20161027, end: 20161110
  11. ADALAT [Concomitant]
     Active Substance: NIFEDIPINE
     Indication: HYPERTENSION
     Route: 048
     Dates: start: 20161110
  12. LOXONIN [Concomitant]
     Active Substance: LOXOPROFEN SODIUM
     Indication: PERIARTHRITIS
     Route: 061
     Dates: start: 20161222
  13. CEFZON [Concomitant]
     Active Substance: CEFDINIR
     Indication: CHEILITIS
     Route: 048
     Dates: start: 20170316, end: 20170322
  14. DEXALTIN [Concomitant]
     Active Substance: DEXAMETHASONE
     Indication: CHEILITIS
     Dosage: UNK UNK, UNKNOWN FREQ.
     Route: 061
     Dates: start: 20170406

REACTIONS (5)
  - Hypertension [Recovered/Resolved]
  - Upper respiratory tract inflammation [Recovered/Resolved]
  - Vision blurred [Recovered/Resolved]
  - Cheilitis [Recovered/Resolved]
  - Periarthritis [Unknown]

NARRATIVE: CASE EVENT DATE: 20161013
